FAERS Safety Report 22016674 (Version 15)
Quarter: 2024Q4

REPORT INFORMATION
  Report Type: Spontaneous
  Country: US (occurrence: US)
  Receive Date: 20230221
  Receipt Date: 20241226
  Transmission Date: 20250115
  Serious: No
  Sender: PFIZER
  Company Number: US-PFIZER INC-PV202200113058

PATIENT
  Age: 54 Year
  Sex: Female
  Weight: 59.4 kg

DRUGS (20)
  1. IBRANCE [Suspect]
     Active Substance: PALBOCICLIB
     Indication: Breast cancer female
     Dosage: 125 MG, CYCLIC (1X 125 MG TABLET ONCE PER DAY FOR 21 DAYS)
     Route: 048
     Dates: start: 20221203
  2. IBRANCE [Suspect]
     Active Substance: PALBOCICLIB
     Dosage: 100 MG, CYCLIC (1 X 100 MG TABLET DAILY FOR 21 DAYS)
     Route: 048
     Dates: start: 20240405
  3. LETROZOLE [Concomitant]
     Active Substance: LETROZOLE
     Dosage: 2.5 MG
  4. XELJANZ [Concomitant]
     Active Substance: TOFACITINIB CITRATE
     Indication: Colitis ulcerative
     Dosage: 10 MG
  5. CYANOCOBALAMIN [Concomitant]
     Active Substance: CYANOCOBALAMIN
     Dosage: 1000 UG
  6. MAGNESIUM [Concomitant]
     Active Substance: MAGNESIUM
     Dosage: 30 MG
  7. VITAMINS [Concomitant]
     Active Substance: VITAMINS
     Dosage: UNK
  8. HERBALS\TURMERIC [Concomitant]
     Active Substance: HERBALS\TURMERIC
     Dosage: 500 MG
  9. GOSERELIN [Concomitant]
     Active Substance: GOSERELIN
     Dosage: 3.6 MG
  10. GOSERELIN [Concomitant]
     Active Substance: GOSERELIN
     Dosage: 10.8 MG
  11. VITAMIN B COMPLEX [Concomitant]
     Active Substance: CYANOCOBALAMIN\DEXPANTHENOL\NIACINAMIDE\PYRIDOXINE HYDROCHLORIDE\RIBOFLAVIN 5^-PHOSPHATE SODIUM\THIA
     Dosage: UNK
  12. BROMELAINS [Concomitant]
     Active Substance: BROMELAINS
     Dosage: UNK (POW)
  13. CELEBREX [Concomitant]
     Active Substance: CELECOXIB
     Dosage: 200 MG
  14. HYDROCORTISONE ACETATE [Concomitant]
     Active Substance: HYDROCORTISONE ACETATE
     Dosage: 2.5 %
  15. LIDOCAINE HYDROCHLORIDE [Concomitant]
     Active Substance: LIDOCAINE HYDROCHLORIDE
     Dosage: POW
  16. LYSINE [Concomitant]
     Active Substance: LYSINE
     Dosage: 500 MG
  17. COBAMAMIDE [Concomitant]
     Active Substance: COBAMAMIDE
     Dosage: 1000 UG
  18. VITAMIN D3 [Concomitant]
     Active Substance: CHOLECALCIFEROL
     Dosage: 10000 IU
  19. ELIQUIS [Concomitant]
     Active Substance: APIXABAN
     Dosage: UNK
  20. INFLUENZA VIRUS VACCINE [Concomitant]
     Active Substance: INFLUENZA VIRUS VACCINE
     Indication: Immunisation
     Dosage: DOSE NUMBER UNKNOWN, SINGLE

REACTIONS (7)
  - Gastrointestinal disorder [Unknown]
  - Migraine [Not Recovered/Not Resolved]
  - Headache [Not Recovered/Not Resolved]
  - Arthralgia [Not Recovered/Not Resolved]
  - Gastroenteritis viral [Unknown]
  - COVID-19 [Unknown]
  - Fatigue [Not Recovered/Not Resolved]
